FAERS Safety Report 24033132 (Version 1)
Quarter: 2024Q3

REPORT INFORMATION
  Report Type: Spontaneous
  Country: US (occurrence: US)
  Receive Date: 20240701
  Receipt Date: 20240701
  Transmission Date: 20241016
  Serious: Yes (Life-Threatening)
  Sender: GRIFOLS
  Company Number: US-IGSA-BIG0029567

PATIENT
  Age: 78 Year
  Sex: Male
  Weight: 79.365 kg

DRUGS (16)
  1. PROLASTIN-C LIQUID [Suspect]
     Active Substance: .ALPHA.1-PROTEINASE INHIBITOR HUMAN
     Indication: Alpha-1 antitrypsin deficiency
     Dosage: 4392 MILLIGRAM, Q.WK.
     Route: 042
     Dates: end: 20240618
  2. EPINEPHRINE [Concomitant]
     Active Substance: EPINEPHRINE
  3. SODIUM CHLORIDE [Concomitant]
     Active Substance: SODIUM CHLORIDE
  4. FLUTICASONE PROPIONATE [Concomitant]
     Active Substance: FLUTICASONE PROPIONATE
  5. CETIRIZINE HCL [Concomitant]
     Active Substance: CETIRIZINE HYDROCHLORIDE
  6. ZINC [Concomitant]
     Active Substance: ZINC
  7. LEVOTHYROXINE SODIUM [Concomitant]
     Active Substance: LEVOTHYROXINE SODIUM
  8. ASCORBIC ACID [Concomitant]
     Active Substance: ASCORBIC ACID
  9. VITAMIN D3 [Concomitant]
     Active Substance: CHOLECALCIFEROL
  10. CALCIUM [Concomitant]
     Active Substance: CALCIUM
  11. PSEUDOEPHEDRINE [Concomitant]
     Active Substance: PSEUDOEPHEDRINE
  12. SIMVASTATIN [Concomitant]
     Active Substance: SIMVASTATIN
  13. ALBUTEROL SULFATE [Concomitant]
     Active Substance: ALBUTEROL SULFATE
  14. TADALAFIL [Concomitant]
     Active Substance: TADALAFIL
  15. VITAMINS [Concomitant]
     Active Substance: VITAMINS
  16. XARELTO [Concomitant]
     Active Substance: RIVAROXABAN

REACTIONS (6)
  - Nausea [Recovering/Resolving]
  - Malaise [Recovering/Resolving]
  - Erythema [Recovering/Resolving]
  - Chest discomfort [Recovering/Resolving]
  - Oxygen saturation decreased [Recovering/Resolving]
  - Incorrect drug administration rate [Recovering/Resolving]

NARRATIVE: CASE EVENT DATE: 20240618
